FAERS Safety Report 5506276-1 (Version None)
Quarter: 2007Q4

REPORT INFORMATION
  Report Type: 
  Country: None (occurrence: None)
  Receive Date: 20071105
  Receipt Date: 20071024
  Transmission Date: 20080405
  Serious: Yes (Other)
  Sender: FDA-Public Use
  Company Number: JP-JNJFOC-20071007103

PATIENT
  Sex: Male
  Weight: 49 kg

DRUGS (2)
  1. REMICADE [Suspect]
     Indication: CROHN'S DISEASE
     Route: 042
  2. ELENTAL [Concomitant]
     Dosage: DOSE: 3 PAC
     Route: 048

REACTIONS (1)
  - LYMPHOMA [None]
